FAERS Safety Report 8482914-9 (Version None)
Quarter: 2012Q3

REPORT INFORMATION
  Report Type: 
  Country: None (occurrence: None)
  Receive Date: 20120702
  Receipt Date: 20120621
  Transmission Date: 20120928
  Serious: Yes (Hospitalization, Other)
  Sender: FDA-Public Use
  Company Number: IE-ELI_LILLY_AND_COMPANY-IE201205007435

PATIENT
  Sex: Female
  Weight: 61 kg

DRUGS (12)
  1. RASILEZ [Concomitant]
     Indication: HYPERTENSION
     Dosage: 150 MG, BID
     Dates: start: 20110411, end: 20110515
  2. AMLODIPINE [Concomitant]
     Dosage: 10 MG, QD
     Dates: start: 20110519, end: 20111114
  3. EXFORGE [Concomitant]
     Dosage: UNK
     Dates: end: 20110411
  4. IBANDRONIC ACID [Concomitant]
     Dosage: UNK
     Dates: start: 20070516, end: 20110915
  5. BUMETANIDE [Concomitant]
     Dosage: 1 MG, QD
  6. FORTEO [Suspect]
     Indication: OSTEOPOROSIS
     Dosage: UNK UNK, MONTHLY (1/M)
     Route: 030
     Dates: start: 20110801
  7. LANSOPRAZOLE [Concomitant]
     Dosage: 30 MG, QD
     Dates: start: 20110126, end: 20111114
  8. CLOPIDOGREL [Concomitant]
     Dosage: 45 MG, QD
     Dates: start: 20110611, end: 20111114
  9. RASILEZ [Concomitant]
     Dosage: 300 MG, UNK
     Dates: start: 20110518, end: 20110920
  10. NEBIVOLOL [Concomitant]
     Dosage: 5 MG, QD
     Dates: start: 20070131, end: 20111114
  11. ATORVASTATIN [Concomitant]
     Dosage: UNK
     Dates: start: 20100210, end: 20111114
  12. FUROSEMIDE [Concomitant]
     Dosage: 40 MG, QD

REACTIONS (3)
  - HYPONATRAEMIA [None]
  - INCORRECT ROUTE OF DRUG ADMINISTRATION [None]
  - INAPPROPRIATE SCHEDULE OF DRUG ADMINISTRATION [None]
